FAERS Safety Report 18044602 (Version 1)
Quarter: 2020Q3

REPORT INFORMATION
  Report Type: Spontaneous
  Country: US (occurrence: US)
  Receive Date: 20200720
  Receipt Date: 20200720
  Transmission Date: 20201103
  Serious: No
  Sender: FDA-Public Use
  Company Number: None

PATIENT
  Age: 28 Year
  Sex: Male
  Weight: 91.7 kg

DRUGS (2)
  1. ISONIAZID. [Suspect]
     Active Substance: ISONIAZID
  2. RIFAPENTINE 900MG [Suspect]
     Active Substance: RIFAPENTINE

REACTIONS (5)
  - Restlessness [None]
  - Aspartate aminotransferase increased [None]
  - Alanine aminotransferase increased [None]
  - Fatigue [None]
  - Gastrooesophageal reflux disease [None]

NARRATIVE: CASE EVENT DATE: 20200708
